FAERS Safety Report 20836562 (Version 2)
Quarter: 2022Q4

REPORT INFORMATION
  Report Type: Spontaneous
  Country: US (occurrence: US)
  Receive Date: 20220517
  Receipt Date: 20221014
  Transmission Date: 20230113
  Serious: No
  Sender: FDA-Public Use
  Company Number: US-BRISTOL-MYERS SQUIBB COMPANY-2022-035225

PATIENT
  Age: 85 Year
  Sex: Female

DRUGS (3)
  1. REVLIMID [Suspect]
     Active Substance: LENALIDOMIDE
     Indication: Plasma cell myeloma
     Dosage: FREQUENCY: DAILY FOR 21 DAYS THEN TAKE 7 DAYS OFF
     Route: 048
     Dates: start: 202106
  2. REVLIMID [Suspect]
     Active Substance: LENALIDOMIDE
     Dosage: 28 DAYS
     Route: 048
     Dates: start: 202106
  3. BUDESONIDE [Concomitant]
     Active Substance: BUDESONIDE
     Indication: Product used for unknown indication
     Route: 065

REACTIONS (3)
  - Abdominal pain upper [Unknown]
  - Diarrhoea [Unknown]
  - Contusion [Unknown]

NARRATIVE: CASE EVENT DATE: 20220429
